FAERS Safety Report 9424805 (Version 1)
Quarter: 2013Q3

REPORT INFORMATION
  Report Type: Spontaneous
  Country: AU (occurrence: AU)
  Receive Date: 20130729
  Receipt Date: 20130729
  Transmission Date: 20140515
  Serious: No
  Sender: FDA-Public Use
  Company Number: AU-B.I. PHARMACEUTICALS,INC./RIDGEFIELD-2013-AU-00666AU

PATIENT
  Age: 65 Year
  Sex: Female
  Weight: 65 kg

DRUGS (6)
  1. TRAJENTA [Suspect]
     Indication: DIABETES MELLITUS
     Dates: end: 20130311
  2. RENITEC [Concomitant]
     Indication: HYPERTENSION
     Dosage: 20 MG
  3. METFORMIN [Concomitant]
     Dosage: 1000 MG
  4. METFORMIN XR [Concomitant]
     Dosage: 1500 MG
  5. GLYADE [Concomitant]
     Dosage: 80 MG
  6. ATORVASTATIN [Concomitant]
     Dosage: 20 MG

REACTIONS (2)
  - Urticaria [Recovered/Resolved]
  - Pruritus [Recovered/Resolved]
